FAERS Safety Report 22973147 (Version 5)
Quarter: 2024Q1

REPORT INFORMATION
  Report Type: Spontaneous
  Country: HR (occurrence: HR)
  Receive Date: 20230922
  Receipt Date: 20240117
  Transmission Date: 20240410
  Serious: Yes (Other)
  Sender: FDA-Public Use
  Company Number: HR-SAMSUNG BIOEPIS-SB-2023-24992

PATIENT
  Age: 42 Year
  Sex: Female

DRUGS (6)
  1. IMRALDI [Suspect]
     Active Substance: ADALIMUMAB
     Indication: Back pain
     Dosage: 40 MG/0.8ML;
     Route: 058
     Dates: start: 202102, end: 202112
  2. IMRALDI [Suspect]
     Active Substance: ADALIMUMAB
     Indication: Colitis ulcerative
  3. INFLIXIMAB [Suspect]
     Active Substance: INFLIXIMAB
     Indication: Product used for unknown indication
     Dosage: DAY ZERO, THEN AFTER 14 DAYS, THEN AFTER 1 MONTH AND THEN EVERY 6 WEEKS
     Route: 042
     Dates: start: 20220105, end: 202209
  4. AZATHIOPRINE [Concomitant]
     Active Substance: AZATHIOPRINE
     Indication: Immunosuppression
     Dosage: 2 INTO 50 MG
     Route: 065
  5. METHOTREXATE [Concomitant]
     Active Substance: METHOTREXATE
     Indication: Immunosuppression
     Dosage: 2 INTO 50 MG
     Route: 065
  6. SIMPONI [Concomitant]
     Active Substance: GOLIMUMAB
     Indication: Product used for unknown indication
     Route: 058

REACTIONS (8)
  - Therapeutic product effect decreased [Recovered/Resolved]
  - Colitis ulcerative [Recovered/Resolved]
  - Drug specific antibody present [Recovered/Resolved]
  - Back pain [Recovered/Resolved]
  - Dysstasia [Recovered/Resolved]
  - Joint range of motion decreased [Recovered/Resolved]
  - Crohn^s disease [Recovered/Resolved]
  - Product use in unapproved indication [Unknown]
